FAERS Safety Report 5826068-3 (Version None)
Quarter: 2008Q3

REPORT INFORMATION
  Report Type: 
  Country: None (occurrence: None)
  Receive Date: 20080723
  Receipt Date: 20080714
  Transmission Date: 20090109
  Serious: Yes (Life-Threatening)
  Sender: FDA-Public Use
  Company Number: GXKR2008US06574

PATIENT
  Age: 48 Year
  Sex: Female

DRUGS (1)
  1. PHENTERMINE [Suspect]
     Indication: WEIGHT CONTROL

REACTIONS (8)
  - CARDIAC ARREST [None]
  - CORONARY ARTERY DISEASE [None]
  - ELECTROCARDIOGRAM QT PROLONGED [None]
  - HYPERKINESIA [None]
  - MYOCARDIAL INFARCTION [None]
  - PALPITATIONS [None]
  - VENTRICULAR FIBRILLATION [None]
  - VENTRICULAR TACHYCARDIA [None]
